FAERS Safety Report 4737379-7 (Version None)
Quarter: 2005Q3

REPORT INFORMATION
  Report Type: 
  Country: None (occurrence: None)
  Receive Date: 20050805
  Receipt Date: 20050725
  Transmission Date: 20060218
  Serious: Yes (Other)
  Sender: FDA-Public Use
  Company Number: 2005107684

PATIENT
  Age: 51 Year
  Sex: Male
  Weight: 75.2971 kg

DRUGS (10)
  1. ACCUPRIL [Suspect]
     Indication: HYPERTENSION
     Dosage: 20 MG (20 MG, DAILY INTERVAL: EVERY DAY), ORAL
     Route: 048
  2. LIPITOR [Suspect]
     Indication: BLOOD CHOLESTEROL INCREASED
     Dosage: 10 MG (10 MG, DAILY), ORAL
     Route: 048
  3. TIOTROPIUM BROMIDE (TIOTROPIUM BROMIDE) [Suspect]
     Indication: EMPHYSEMA
     Dates: end: 20050101
  4. DURAGESIC-100 [Concomitant]
  5. NITRODUR II (GLYCERYL TRINITRATE) [Concomitant]
  6. NITROGLYCERIN [Concomitant]
  7. OXYCODONE (OXYCODONE) [Concomitant]
  8. ALBUTEROL [Concomitant]
  9. IPRATROPIUM BROMIDE [Concomitant]
  10. ADVAIR (FLUTICASONE PROPIONATE, SALMETEROL XINAFOATE) [Concomitant]

REACTIONS (5)
  - ARTERIAL OCCLUSIVE DISEASE [None]
  - CAROTID ARTERY OCCLUSION [None]
  - CONDITION AGGRAVATED [None]
  - EMPHYSEMA [None]
  - SKIN DISCOLOURATION [None]
